FAERS Safety Report 5868107-X (Version None)
Quarter: 2008Q3

REPORT INFORMATION
  Report Type: 
  Country: None (occurrence: None)
  Receive Date: 20080902
  Receipt Date: 20080422
  Transmission Date: 20090109
  Serious: No
  Sender: FDA-Public Use
  Company Number: US-ABBOTT-08P-163-0448479-00

PATIENT
  Age: 37 Year
  Sex: Female

DRUGS (2)
  1. DEPAKOTE ER [Suspect]
     Indication: DEPRESSION
     Dosage: EVERY NIGHT
     Route: 048
     Dates: start: 20080101
  2. DEPAKOTE ER [Suspect]
     Indication: AGITATION

REACTIONS (1)
  - AMENORRHOEA [None]
